FAERS Safety Report 23836257 (Version 17)
Quarter: 2025Q3

REPORT INFORMATION
  Report Type: Spontaneous
  Country: US (occurrence: US)
  Receive Date: 20240509
  Receipt Date: 20250918
  Transmission Date: 20251020
  Serious: Yes (Hospitalization, Other)
  Sender: PFIZER
  Company Number: US-PFIZER INC-202400103020

PATIENT
  Age: 55 Year
  Sex: Female
  Weight: 67.59 kg

DRUGS (4)
  1. XELJANZ [Suspect]
     Active Substance: TOFACITINIB CITRATE
     Indication: Rheumatoid arthritis
     Dosage: 5 MG, 2X/DAY
     Route: 048
  2. XELJANZ [Suspect]
     Active Substance: TOFACITINIB CITRATE
  3. OXYCODONE AND ACETAMINOPHEN [Concomitant]
     Active Substance: ACETAMINOPHEN\OXYCODONE HYDROCHLORIDE
     Indication: Pain
  4. OXYCODONE AND ACETAMINOPHEN [Concomitant]
     Active Substance: ACETAMINOPHEN\OXYCODONE HYDROCHLORIDE
     Dates: start: 20240603

REACTIONS (7)
  - Left ventricular hypertrophy [Unknown]
  - Wrist fracture [Recovering/Resolving]
  - Condition aggravated [Unknown]
  - Oedema peripheral [Recovering/Resolving]
  - Withdrawal syndrome [Unknown]
  - Oropharyngeal discomfort [Recovering/Resolving]
  - Feeling of despair [Unknown]

NARRATIVE: CASE EVENT DATE: 20190101
